FAERS Safety Report 8770232 (Version 1)
Quarter: 2012Q4

REPORT INFORMATION
  Report Type: 
  Country: US (occurrence: US)
  Receive Date: 20120904
  Receipt Date: 20120904
  Transmission Date: 20130627
  Serious: Yes (Other)
  Sender: FDA-Public Use
  Company Number: US-ROCHE-1111038

PATIENT
  Age: 36 Year
  Sex: Female

DRUGS (2)
  1. XELODA [Suspect]
     Indication: COLORECTAL CANCER METASTATIC
  2. AVASTIN [Concomitant]
     Indication: COLORECTAL CANCER METASTATIC
     Dates: start: 201106

REACTIONS (2)
  - Central nervous system lesion [Unknown]
  - Metastases to lung [Unknown]
